FAERS Safety Report 7208669-3 (Version None)
Quarter: 2011Q1

REPORT INFORMATION
  Report Type: 
  Country: None (occurrence: None)
  Receive Date: 20110104
  Receipt Date: 20101227
  Transmission Date: 20110831
  Serious: Yes (Hospitalization)
  Sender: FDA-Public Use
  Company Number: US-ROCHE-750823

PATIENT
  Age: 48 Year
  Sex: Female

DRUGS (4)
  1. DIAZEPAM [Suspect]
     Route: 065
  2. LEVETIRACETAM [Suspect]
     Indication: EPILEPSY
     Route: 065
  3. DIAZEPAM [Suspect]
     Dosage: OVERDOSE
     Route: 065
  4. PHENYTOIN [Suspect]
     Indication: EPILEPSY
     Route: 065

REACTIONS (4)
  - OVERDOSE [None]
  - GRAND MAL CONVULSION [None]
  - SUICIDE ATTEMPT [None]
  - CONVERSION DISORDER [None]
